FAERS Safety Report 20700248 (Version 1)
Quarter: 2022Q2

REPORT INFORMATION
  Report Type: Spontaneous
  Country: CA (occurrence: None)
  Receive Date: 20220412
  Receipt Date: 20220412
  Transmission Date: 20220720
  Serious: Yes (Other)
  Sender: FDA-Public Use
  Company Number: CA-ROCHE-3070193

PATIENT
  Age: 47 Year
  Sex: Female
  Weight: 97 kg

DRUGS (10)
  1. RITUXIMAB [Suspect]
     Active Substance: RITUXIMAB
     Indication: Granulomatosis with polyangiitis
     Route: 041
  2. SULFAMETHOXAZOLE [Concomitant]
     Active Substance: SULFAMETHOXAZOLE
  3. TYLENOL [Concomitant]
     Active Substance: ACETAMINOPHEN
     Indication: Premedication
     Route: 048
  4. RISEDRONATE SODIUM [Concomitant]
     Active Substance: RISEDRONATE SODIUM
  5. PREDNISONE [Concomitant]
     Active Substance: PREDNISONE
  6. PANTOPRAZOLE [Concomitant]
     Active Substance: PANTOPRAZOLE
     Indication: Gastrooesophageal reflux disease
  7. METHYLPREDNISOLONE SODIUM SUCCINATE [Concomitant]
     Active Substance: METHYLPREDNISOLONE SODIUM SUCCINATE
     Indication: Premedication
     Route: 042
  8. METHOTREXATE [Concomitant]
     Active Substance: METHOTREXATE
     Route: 037
  9. FOLIC ACID [Concomitant]
     Active Substance: FOLIC ACID
  10. BENADRYL [Concomitant]
     Active Substance: DIPHENHYDRAMINE HYDROCHLORIDE
     Indication: Premedication
     Route: 048

REACTIONS (4)
  - Gastrooesophageal reflux disease [Unknown]
  - Idiopathic intracranial hypertension [Unknown]
  - Off label use [Unknown]
  - Weight increased [Unknown]
